FAERS Safety Report 8978319 (Version 2)
Quarter: 2013Q1

REPORT INFORMATION
  Report Type: Report from Study
  Country: CA (occurrence: CA)
  Receive Date: 20121221
  Receipt Date: 20130122
  Transmission Date: 20140127
  Serious: Yes (Hospitalization, Other)
  Sender: FDA-Public Use
  Company Number: CA-JNJFOC-20121203611

PATIENT
  Sex: Male
  Weight: 74.84 kg

DRUGS (1)
  1. REMICADE [Suspect]
     Indication: CROHN^S DISEASE
     Route: 042
     Dates: start: 2007

REACTIONS (2)
  - Weight decreased [Recovering/Resolving]
  - Crohn^s disease [Recovering/Resolving]
